FAERS Safety Report 22587646 (Version 6)
Quarter: 2023Q4

REPORT INFORMATION
  Report Type: Report from Study
  Country: US (occurrence: US)
  Receive Date: 20230612
  Receipt Date: 20231211
  Transmission Date: 20240109
  Serious: Yes (Other)
  Sender: FDA-Public Use
  Company Number: US-UCBSA-2023029158

PATIENT
  Age: 38 Year
  Sex: Female

DRUGS (3)
  1. FINTEPLA [Suspect]
     Active Substance: FENFLURAMINE
     Indication: Lennox-Gastaut syndrome
     Dosage: 2.4 MILLIGRAM, 2X/DAY (BID)
     Route: 048
     Dates: start: 20221214, end: 20230615
  2. FINTEPLA [Suspect]
     Active Substance: FENFLURAMINE
     Dosage: 10.56 MILLIGRAM, DAILY
     Route: 048
     Dates: start: 20221205, end: 20230602
  3. FINTEPLA [Suspect]
     Active Substance: FENFLURAMINE
     Dosage: UNK
     Route: 048
     Dates: end: 20230615

REACTIONS (3)
  - Aortic valve incompetence [Not Recovered/Not Resolved]
  - Left ventricular hypertrophy [Not Recovered/Not Resolved]
  - Pulmonary arterial pressure increased [Not Recovered/Not Resolved]

NARRATIVE: CASE EVENT DATE: 20221205
